FAERS Safety Report 9741602 (Version 1)
Quarter: 2013Q4

REPORT INFORMATION
  Report Type: Spontaneous
  Country: US (occurrence: US)
  Receive Date: 20131210
  Receipt Date: 20131210
  Transmission Date: 20140711
  Serious: Yes (Other)
  Sender: FDA-Public Use
  Company Number: US-AMGEN-USASP2013085507

PATIENT
  Age: 74 Year
  Sex: Female

DRUGS (2)
  1. PROLIA [Suspect]
     Indication: OSTEOPOROSIS POSTMENOPAUSAL
     Dosage: UNK
     Route: 065
     Dates: start: 20131111
  2. PREDNISONE [Concomitant]

REACTIONS (8)
  - Shoulder arthroplasty [Unknown]
  - Urinary tract infection [Unknown]
  - Muscle spasms [Unknown]
  - Pain [Unknown]
  - Myalgia [Unknown]
  - Back pain [Unknown]
  - Sciatica [Unknown]
  - Pain in extremity [Unknown]
